FAERS Safety Report 9200450 (Version 2)
Quarter: 2013Q2

REPORT INFORMATION
  Report Type: Report from Study
  Country: BR (occurrence: BR)
  Receive Date: 20130329
  Receipt Date: 20130521
  Transmission Date: 20140414
  Serious: Yes (Hospitalization)
  Sender: FDA-Public Use
  Company Number: BR-ABBOTT-13P-020-1067043-00

PATIENT
  Age: 62 Year
  Sex: Male
  Weight: 74 kg

DRUGS (6)
  1. HUMIRA [Suspect]
     Indication: RHEUMATOID ARTHRITIS
     Route: 058
     Dates: start: 201302
  2. HUMIRA [Suspect]
  3. RITMONORM [Concomitant]
     Indication: PRODUCT USED FOR UNKNOWN INDICATION
  4. ENALAPRIL MALEATE [Concomitant]
     Indication: PRODUCT USED FOR UNKNOWN INDICATION
  5. HIDRION [Concomitant]
     Indication: PRODUCT USED FOR UNKNOWN INDICATION
  6. ETNA [Concomitant]
     Indication: PRODUCT USED FOR UNKNOWN INDICATION
     Dosage: HYDROXOCOBALAMIN ACETATE / DISODIUM PHOSPHATE

REACTIONS (7)
  - Polyarteritis nodosa [Unknown]
  - Pain [Unknown]
  - Rheumatoid vasculitis [Unknown]
  - Skin lesion [Unknown]
  - Back pain [Unknown]
  - Pneumonia [Unknown]
  - Pleural effusion [Unknown]
